FAERS Safety Report 9466394 (Version 1)
Quarter: 2013Q3

REPORT INFORMATION
  Report Type: Spontaneous
  Country: US (occurrence: None)
  Receive Date: 20130816
  Receipt Date: 20130816
  Transmission Date: 20140515
  Serious: Yes (Disabling)
  Sender: FDA-Public Use
  Company Number: None

PATIENT
  Age: 80 Year
  Sex: Female
  Weight: 57.15 kg

DRUGS (2)
  1. CIPRO [Suspect]
     Indication: INFECTION
     Dates: start: 20130330
  2. FLAGYL [Suspect]
     Indication: INFECTION
     Dates: start: 20130330

REACTIONS (14)
  - Confusional state [None]
  - Constipation [None]
  - Diarrhoea [None]
  - Tendonitis [None]
  - Ear pain [None]
  - Deafness [None]
  - Hypoaesthesia [None]
  - Visual acuity reduced [None]
  - Pyrexia [None]
  - Chills [None]
  - Tremor [None]
  - Glossodynia [None]
  - Asthenia [None]
  - Nausea [None]
